FAERS Safety Report 5273897-3 (Version None)
Quarter: 2007Q1

REPORT INFORMATION
  Report Type: 
  Country: None (occurrence: None)
  Receive Date: 20070323
  Receipt Date: 20070319
  Transmission Date: 20070707
  Serious: Yes (Hospitalization, Other)
  Sender: FDA-Public Use
  Company Number: US-AMGEN-US213008

PATIENT
  Sex: Female

DRUGS (2)
  1. ENBREL [Suspect]
     Indication: RHEUMATOID ARTHRITIS
     Route: 058
     Dates: start: 20030701
  2. METHOTREXATE [Concomitant]
     Route: 048
     Dates: start: 20030101

REACTIONS (7)
  - DEEP VEIN THROMBOSIS [None]
  - FEMUR FRACTURE [None]
  - GOUT [None]
  - INJECTION SITE BRUISING [None]
  - JOINT ARTHROPLASTY [None]
  - LOCALISED INFECTION [None]
  - SYNOVECTOMY [None]
